FAERS Safety Report 6242656-7 (Version None)
Quarter: 2009Q2

REPORT INFORMATION
  Report Type: 
  Country: None (occurrence: None)
  Receive Date: 20090624
  Receipt Date: 20090617
  Transmission Date: 20091009
  Serious: No
  Sender: FDA-Public Use
  Company Number: JP-JNJFOC-20090604109

PATIENT

DRUGS (6)
  1. DUROTEP MT PATCH [Suspect]
     Indication: CANCER PAIN
     Dosage: THREE 75 UG/HR
     Route: 062
  2. OMEPRAL [Concomitant]
     Route: 048
  3. MOBIC [Concomitant]
     Route: 048
  4. NOVAMIN [Concomitant]
     Route: 048
  5. OPSO [Concomitant]
     Route: 048
  6. FEMARA [Concomitant]
     Route: 048

REACTIONS (3)
  - APPLICATION SITE PRURITUS [None]
  - DRUG ADMINISTERED AT INAPPROPRIATE SITE [None]
  - WRONG TECHNIQUE IN DRUG USAGE PROCESS [None]
